FAERS Safety Report 21261310 (Version 15)
Quarter: 2022Q4

REPORT INFORMATION
  Report Type: Spontaneous
  Country: US (occurrence: US)
  Receive Date: 20220827
  Receipt Date: 20221223
  Transmission Date: 20230113
  Serious: Yes (Hospitalization, Other)
  Sender: FDA-Public Use
  Company Number: US-UNITED THERAPEUTICS-UNT-2022-018908

PATIENT
  Sex: Female
  Weight: 42.812 kg

DRUGS (11)
  1. REMODULIN [Suspect]
     Active Substance: TREPROSTINIL
     Indication: Pulmonary arterial hypertension
     Dosage: UNK, CONTINUING
     Route: 041
     Dates: start: 20210521
  2. REMODULIN [Suspect]
     Active Substance: TREPROSTINIL
     Dosage: 0.044 ?G/KG, CONTINUING
     Route: 041
  3. REMODULIN [Suspect]
     Active Substance: TREPROSTINIL
     Dosage: 0.046 ?G/KG, CONTINUING
     Route: 041
  4. REMODULIN [Suspect]
     Active Substance: TREPROSTINIL
     Dosage: 0.048 ?G/KG, CONTINUING
     Route: 041
  5. REMODULIN [Suspect]
     Active Substance: TREPROSTINIL
     Dosage: UNK, CONTINUING
     Route: 041
  6. REMODULIN [Suspect]
     Active Substance: TREPROSTINIL
     Dosage: 0.049 ?G/KG, CONTINUING
     Route: 041
  7. REMODULIN [Suspect]
     Active Substance: TREPROSTINIL
     Dosage: 0.05 ?G/KG, CONTINUING
     Route: 041
  8. REMODULIN [Suspect]
     Active Substance: TREPROSTINIL
     Dosage: 0.055 ?G/KG, CONTINUING
     Route: 041
  9. DALVANCE [Suspect]
     Active Substance: DALBAVANCIN
     Indication: Localised infection
     Dosage: UNK
     Route: 065
     Dates: start: 202208, end: 202208
  10. DALVANCE [Suspect]
     Active Substance: DALBAVANCIN
     Dosage: UNK
     Route: 065
     Dates: start: 202209, end: 202209
  11. VANCOMYCIN [Suspect]
     Active Substance: VANCOMYCIN
     Indication: Localised infection
     Dosage: UNK
     Route: 041
     Dates: start: 202208

REACTIONS (17)
  - Localised infection [Unknown]
  - Blood sodium decreased [Unknown]
  - Dyspnoea [Unknown]
  - Scleroderma [Unknown]
  - Osteomyelitis [Unknown]
  - Weight decreased [Unknown]
  - Seasonal allergy [Unknown]
  - Sinus disorder [Unknown]
  - Headache [Unknown]
  - Nausea [Unknown]
  - Flatulence [Unknown]
  - Muscle spasms [Unknown]
  - Malaise [Unknown]
  - Diarrhoea [Unknown]
  - Pain [Unknown]
  - Asthenia [Not Recovered/Not Resolved]
  - Device infusion issue [Unknown]

NARRATIVE: CASE EVENT DATE: 20220101
